FAERS Safety Report 9527928 (Version 1)
Quarter: 2013Q3

REPORT INFORMATION
  Report Type: Report from Study
  Country: CA (occurrence: CA)
  Receive Date: 20130917
  Receipt Date: 20130917
  Transmission Date: 20140515
  Serious: Yes (Other)
  Sender: FDA-Public Use
  Company Number: CA-BAYER-2013-111173

PATIENT
  Age: 47 Year
  Sex: Male

DRUGS (4)
  1. BETASERON [Suspect]
     Indication: MULTIPLE SCLEROSIS
     Dosage: 0.25 MG, UNK
     Dates: start: 19990401
  2. CELEBREX [Concomitant]
  3. AMANTADINE [Concomitant]
  4. TYLENOL [PARACETAMOL] [Concomitant]
     Indication: MUSCLE RELAXANT THERAPY
     Dosage: UNK UNK, PRN

REACTIONS (2)
  - Leukaemia [Unknown]
  - Intentional drug misuse [None]
